FAERS Safety Report 6234807-5 (Version None)
Quarter: 2009Q2

REPORT INFORMATION
  Report Type: 
  Country: None (occurrence: None)
  Receive Date: 20090618
  Receipt Date: 20090610
  Transmission Date: 20091009
  Serious: Yes (Hospitalization)
  Sender: FDA-Public Use
  Company Number: US-GENENTECH-263001

PATIENT
  Sex: Female
  Weight: 70.31 kg

DRUGS (1)
  1. RITUXIMAB [Suspect]
     Indication: RHEUMATOID ARTHRITIS
     Dosage: 1000 MG, Q2W/Q6M
     Route: 042
     Dates: start: 20070921

REACTIONS (1)
  - DIVERTICULITIS [None]
